FAERS Safety Report 6230049-8 (Version None)
Quarter: 2009Q2

REPORT INFORMATION
  Report Type: 
  Country: None (occurrence: None)
  Receive Date: 20090615
  Receipt Date: 20090610
  Transmission Date: 20091009
  Serious: No
  Sender: FDA-Public Use
  Company Number: US-B.I. PHARMACEUTICALS,INC./RIDGEFIELD-2009-BP-07186BP

PATIENT
  Sex: Female

DRUGS (8)
  1. SPIRIVA [Suspect]
     Indication: CHRONIC OBSTRUCTIVE PULMONARY DISEASE
     Dosage: 18MCG
     Route: 055
     Dates: start: 20070101
  2. VITAMIN - I CAPS [Concomitant]
     Indication: MACULAR DEGENERATION
     Route: 048
     Dates: start: 20050101
  3. ADVAIR HFA [Concomitant]
     Indication: CHRONIC OBSTRUCTIVE PULMONARY DISEASE
  4. OMEGA 3 VITAMIN [Concomitant]
     Indication: PROPHYLAXIS
  5. CALCIUM [Concomitant]
     Indication: PROPHYLAXIS
  6. MUCINEX [Concomitant]
     Indication: ASTHMA
  7. MUCINEX [Concomitant]
     Indication: CHRONIC OBSTRUCTIVE PULMONARY DISEASE
  8. ZYRTEC [Concomitant]
     Indication: HYPERSENSITIVITY

REACTIONS (1)
  - VISUAL ACUITY REDUCED [None]
